FAERS Safety Report 16376718 (Version 2)
Quarter: 2020Q2

REPORT INFORMATION
  Report Type: Spontaneous
  Country: CA (occurrence: CA)
  Receive Date: 20190531
  Receipt Date: 20200603
  Transmission Date: 20200713
  Serious: Yes (Death)
  Sender: FDA-Public Use
  Company Number: CA-009507513-1905CAN013167

PATIENT
  Sex: Male

DRUGS (2)
  1. CUBICIN [Suspect]
     Active Substance: DAPTOMYCIN
     Indication: ENDOCARDITIS STAPHYLOCOCCAL
     Route: 065
  2. LINEZOLID. [Suspect]
     Active Substance: LINEZOLID
     Indication: ENDOCARDITIS STAPHYLOCOCCAL
     Dosage: UNK
     Route: 065
     Dates: start: 2018

REACTIONS (2)
  - Eosinophilic pneumonia [Fatal]
  - Allergic eosinophilia [Fatal]

NARRATIVE: CASE EVENT DATE: 2018
